FAERS Safety Report 24307384 (Version 2)
Quarter: 2024Q3

REPORT INFORMATION
  Report Type: Spontaneous
  Country: CR (occurrence: CR)
  Receive Date: 20240911
  Receipt Date: 20240926
  Transmission Date: 20241016
  Serious: Yes (Other)
  Sender: IPSEN
  Company Number: CR-IPSEN Group, Research and Development-2024-17669

PATIENT
  Sex: Female

DRUGS (1)
  1. DYSPORT [Suspect]
     Active Substance: ABOBOTULINUMTOXINA
     Indication: Product used for unknown indication
     Route: 065
     Dates: start: 202406, end: 202406

REACTIONS (3)
  - Syncope [Unknown]
  - Stupor [Unknown]
  - Hypersensitivity [Unknown]
